FAERS Safety Report 15967909 (Version 2)
Quarter: 2019Q1

REPORT INFORMATION
  Report Type: Spontaneous
  Country: US (occurrence: US)
  Receive Date: 20190215
  Receipt Date: 20190326
  Transmission Date: 20190418
  Serious: No
  Sender: FDA-Public Use
  Company Number: US-GLAXOSMITHKLINE-US2019019203

PATIENT
  Sex: Female
  Weight: 108 kg

DRUGS (1)
  1. NUCALA [Suspect]
     Active Substance: MEPOLIZUMAB
     Indication: ASTHMA
     Dosage: 100 MG, CYC
     Route: 058
     Dates: start: 20190103, end: 20190205

REACTIONS (3)
  - Chest pain [Unknown]
  - Herpes zoster [Unknown]
  - Post herpetic neuralgia [Not Recovered/Not Resolved]
